FAERS Safety Report 25681486 (Version 1)
Quarter: 2025Q3

REPORT INFORMATION
  Report Type: Spontaneous
  Country: US (occurrence: US)
  Receive Date: 20250814
  Receipt Date: 20250814
  Transmission Date: 20251020
  Serious: Yes (Other)
  Sender: RANBAXY
  Company Number: US-SUN PHARMACEUTICAL INDUSTRIES INC-2025R1-522411

PATIENT
  Age: 34 Year
  Sex: Female

DRUGS (2)
  1. LEUPROLIDE [Suspect]
     Active Substance: LEUPROLIDE
     Indication: Catamenial pneumothorax
     Route: 065
  2. NORETHINDRONE [Suspect]
     Active Substance: NORETHINDRONE
     Indication: Catamenial pneumothorax
     Dosage: UNK, DAILY
     Route: 048

REACTIONS (3)
  - Condition aggravated [Unknown]
  - Disease progression [Unknown]
  - Therapy non-responder [Unknown]
